FAERS Safety Report 6250924-8 (Version None)
Quarter: 2009Q2

REPORT INFORMATION
  Report Type: 
  Country: None (occurrence: None)
  Receive Date: 20090630
  Receipt Date: 20090105
  Transmission Date: 20091009
  Serious: No
  Sender: FDA-Public Use
  Company Number: US-ABBOTT-09P-163-0495753-00

PATIENT
  Sex: Male

DRUGS (19)
  1. ZEMPLAR [Suspect]
     Indication: HYPERPARATHYROIDISM
     Dosage: QOD
     Dates: start: 20081117
  2. PROCRIT [Concomitant]
     Indication: DRUG USE FOR UNKNOWN INDICATION
  3. LASIX [Concomitant]
     Indication: DRUG USE FOR UNKNOWN INDICATION
  4. BICARB [Concomitant]
     Indication: DRUG USE FOR UNKNOWN INDICATION
  5. RENVELA [Concomitant]
     Indication: DRUG USE FOR UNKNOWN INDICATION
  6. COZAAR [Concomitant]
     Indication: DRUG USE FOR UNKNOWN INDICATION
  7. CRESTOR [Concomitant]
     Indication: DRUG USE FOR UNKNOWN INDICATION
  8. VITAMIN B COMPLEX CAP [Concomitant]
     Indication: DRUG USE FOR UNKNOWN INDICATION
  9. PROGRAF [Concomitant]
     Indication: DRUG USE FOR UNKNOWN INDICATION
  10. MYFORDIC [Concomitant]
     Indication: DRUG USE FOR UNKNOWN INDICATION
  11. PREDNISONE TAB [Concomitant]
     Indication: DRUG USE FOR UNKNOWN INDICATION
  12. REGULAR INSULIN [Concomitant]
     Indication: DRUG USE FOR UNKNOWN INDICATION
  13. NORVASC [Concomitant]
     Indication: DRUG USE FOR UNKNOWN INDICATION
  14. PEPSIC [Concomitant]
     Indication: DRUG USE FOR UNKNOWN INDICATION
  15. PLAVIX [Concomitant]
     Indication: DRUG USE FOR UNKNOWN INDICATION
  16. TOPROL-XL [Concomitant]
     Indication: DRUG USE FOR UNKNOWN INDICATION
  17. VASOTEC [Concomitant]
     Indication: DRUG USE FOR UNKNOWN INDICATION
  18. ZETIA [Concomitant]
     Indication: DRUG USE FOR UNKNOWN INDICATION
  19. VITAMIN D [Concomitant]
     Indication: DRUG USE FOR UNKNOWN INDICATION

REACTIONS (1)
  - DIZZINESS [None]
